FAERS Safety Report 4483878-5 (Version None)
Quarter: 2004Q4

REPORT INFORMATION
  Report Type: 
  Country: None (occurrence: None)
  Receive Date: 20041022
  Receipt Date: 20041022
  Transmission Date: 20050328
  Serious: No
  Sender: FDA-Public Use
  Company Number: None

PATIENT
  Age: 41 Year
  Sex: Male
  Weight: 72.5755 kg

DRUGS (1)
  1. BUPROPION HCL [Suspect]
     Indication: BIPOLAR DISORDER
     Dosage: 100MG  Q DAY PO
     Route: 048
     Dates: start: 20040901

REACTIONS (2)
  - DRUG INEFFECTIVE [None]
  - PHARMACEUTICAL PRODUCT COMPLAINT [None]
